FAERS Safety Report 6689415-9 (Version None)
Quarter: 2010Q2

REPORT INFORMATION
  Report Type: 
  Country: None (occurrence: None)
  Receive Date: 20100420
  Receipt Date: 20100418
  Transmission Date: 20101027
  Serious: Yes (Other)
  Sender: FDA-Public Use
  Company Number: AU-BRISTOL-MYERS SQUIBB COMPANY-14993679

PATIENT
  Age: 48 Year
  Sex: Male

DRUGS (1)
  1. BARACLUDE [Suspect]
     Indication: HEPATITIS B
     Route: 048
     Dates: start: 20080515

REACTIONS (3)
  - HEPATIC NEOPLASM MALIGNANT [None]
  - HEPATIC NEOPLASM MALIGNANT RECURRENT [None]
  - SURGICAL PROCEDURE REPEATED [None]
